FAERS Safety Report 9715753 (Version 2)
Quarter: 2013Q4

REPORT INFORMATION
  Report Type: Spontaneous
  Country: ES (occurrence: ES)
  Receive Date: 20131127
  Receipt Date: 20131203
  Transmission Date: 20140711
  Serious: Yes (Hospitalization, Other)
  Sender: FDA-Public Use
  Company Number: ES-BAYER-2013-142760

PATIENT
  Age: 53 Year
  Sex: Female

DRUGS (3)
  1. BETAFERON [Suspect]
     Indication: MULTIPLE SCLEROSIS
     Dosage: 250 UNK, QOD
     Route: 058
     Dates: start: 20130523, end: 20130903
  2. CARVEDILOL [Concomitant]
     Indication: HYPERTENSION
     Route: 048
  3. CANDESARTAN CILEXETIL [Concomitant]
     Indication: HYPERTENSION
     Dosage: 32 MG, UNK
     Route: 048

REACTIONS (10)
  - Temporal arteritis [Recovering/Resolving]
  - Anaemia [Recovering/Resolving]
  - Influenza like illness [None]
  - Pyrexia [None]
  - Headache [None]
  - Discomfort [None]
  - Abdominal pain [None]
  - Hepatic steatosis [None]
  - Retroperitoneal lymphadenopathy [None]
  - Pericardial effusion [None]
